FAERS Safety Report 8456590-5 (Version None)
Quarter: 2012Q2

REPORT INFORMATION
  Report Type: 
  Country: None (occurrence: None)
  Receive Date: 20120621
  Receipt Date: 20120618
  Transmission Date: 20120825
  Serious: No
  Sender: FDA-Public Use
  Company Number: US-B.I. PHARMACEUTICALS,INC./RIDGEFIELD-2012-BP-10704BP

PATIENT

DRUGS (3)
  1. LAMIVUDINE [Suspect]
  2. VIRAMUNE [Suspect]
  3. ZIDOVUDINE [Suspect]

REACTIONS (1)
  - TREATMENT FAILURE [None]
